FAERS Safety Report 16842157 (Version 1)
Quarter: 2019Q3

REPORT INFORMATION
  Report Type: Spontaneous
  Country: CA (occurrence: CA)
  Receive Date: 20190923
  Receipt Date: 20190923
  Transmission Date: 20191005
  Serious: Yes (Other)
  Sender: FDA-Public Use
  Company Number: CA-AUROBINDO-AUR-APL-2019-061157

PATIENT
  Age: 73 Year
  Sex: Female

DRUGS (2)
  1. RISEDRONATE [Suspect]
     Active Substance: RISEDRONATE SODIUM
     Indication: OSTEOPOROSIS
     Dosage: 150 MILLIGRAM, EVERY 1 MONTHS
     Route: 048
  2. RISEDRONATE [Suspect]
     Active Substance: RISEDRONATE SODIUM
     Dosage: 35 MILLIGRAM, EVERY 1 MONTHS
     Route: 048

REACTIONS (6)
  - Conjunctival oedema [Recovered/Resolved]
  - Scleritis [Recovered/Resolved]
  - Eye pain [Recovered/Resolved]
  - Periorbital oedema [Recovered/Resolved]
  - Visual impairment [Recovered/Resolved]
  - Eye movement disorder [Recovered/Resolved]
